FAERS Safety Report 9560535 (Version 3)
Quarter: 2014Q1

REPORT INFORMATION
  Report Type: Spontaneous
  Country: US (occurrence: US)
  Receive Date: 20130927
  Receipt Date: 20140128
  Transmission Date: 20141002
  Serious: No
  Sender: FDA-Public Use
  Company Number: US-BIOGENIDEC-2013BI052002

PATIENT
  Age: 34 Year
  Sex: Female

DRUGS (26)
  1. TECFIDERA [Suspect]
     Indication: MULTIPLE SCLEROSIS
     Route: 048
  2. TECFIDERA [Suspect]
     Indication: MULTIPLE SCLEROSIS
     Route: 048
     Dates: start: 20130518, end: 20130524
  3. TECFIDERA [Suspect]
     Indication: MULTIPLE SCLEROSIS
     Route: 048
     Dates: start: 20130525, end: 20140114
  4. TECFIDERA [Suspect]
     Indication: MULTIPLE SCLEROSIS
     Dates: start: 20130530
  5. TECFIDERA [Suspect]
     Indication: MULTIPLE SCLEROSIS
     Route: 048
     Dates: start: 20140121
  6. ASPIRIN [Concomitant]
     Indication: PROPHYLAXIS
     Route: 048
     Dates: start: 20130530
  7. PEPCID [Concomitant]
  8. WELLBUTRIN [Concomitant]
  9. FEXOFENADINE [Concomitant]
  10. DICLOFENAC [Concomitant]
  11. SOLUMEDROL [Concomitant]
  12. NEURONTIN [Concomitant]
  13. LIDODERM [Concomitant]
  14. SYNTHROID [Concomitant]
  15. BENADRYL [Concomitant]
  16. MIRENA [Concomitant]
  17. VITAMIN B [Concomitant]
  18. PREDNISONE [Concomitant]
  19. CALCIUM [Concomitant]
  20. VITAMIN D [Concomitant]
  21. VALIUM [Concomitant]
  22. FLAXSEED OIL [Concomitant]
  23. FLONASE [Concomitant]
  24. BACLOFEN [Concomitant]
  25. PERCOCET [Concomitant]
  26. ALEVE [Concomitant]

REACTIONS (12)
  - Haematochezia [Not Recovered/Not Resolved]
  - Arthralgia [Recovered/Resolved]
  - Abdominal distension [Not Recovered/Not Resolved]
  - Urticaria [Unknown]
  - Alopecia [Not Recovered/Not Resolved]
  - Skin burning sensation [Recovered/Resolved]
  - Diarrhoea [Not Recovered/Not Resolved]
  - Abdominal pain upper [Not Recovered/Not Resolved]
  - Vomiting [Not Recovered/Not Resolved]
  - Burning sensation [Unknown]
  - Erythema [Recovered/Resolved]
  - Pruritus [Recovered/Resolved]
